FAERS Safety Report 6073217-0 (Version None)
Quarter: 2009Q1

REPORT INFORMATION
  Report Type: 
  Country: None (occurrence: None)
  Receive Date: 20090211
  Receipt Date: 20081110
  Transmission Date: 20090719
  Serious: No
  Sender: FDA-Public Use
  Company Number: A0753044A

PATIENT
  Age: 39 Year
  Sex: Female

DRUGS (3)
  1. ALTABAX [Suspect]
     Indication: ACNE
     Dosage: 10MG TWICE PER DAY
     Route: 061
     Dates: start: 20081016, end: 20081019
  2. LORAZEPAM [Concomitant]
  3. NICOMIDE [Concomitant]

REACTIONS (3)
  - BURNING SENSATION [None]
  - PURPURA [None]
  - RASH [None]
